FAERS Safety Report 7365152-2 (Version None)
Quarter: 2011Q1

REPORT INFORMATION
  Report Type: 
  Country: None (occurrence: None)
  Receive Date: 20110321
  Receipt Date: 20110308
  Transmission Date: 20110831
  Serious: No
  Sender: FDA-Public Use
  Company Number: US-GENENTECH-314136

PATIENT
  Sex: Female

DRUGS (14)
  1. IPRATROPIUM BROMIDE [Concomitant]
     Indication: PRODUCT USED FOR UNKNOWN INDICATION
  2. ALBUTEROL [Concomitant]
     Indication: PRODUCT USED FOR UNKNOWN INDICATION
  3. MUCINEX [Concomitant]
     Indication: PRODUCT USED FOR UNKNOWN INDICATION
  4. SYMBICORT [Concomitant]
     Indication: PRODUCT USED FOR UNKNOWN INDICATION
  5. PRILOSEC [Concomitant]
     Indication: PRODUCT USED FOR UNKNOWN INDICATION
  6. AMITRIPTYLINE [Concomitant]
     Indication: PRODUCT USED FOR UNKNOWN INDICATION
  7. SINGULAIR [Concomitant]
     Indication: PRODUCT USED FOR UNKNOWN INDICATION
  8. FEXOFENADINE [Concomitant]
     Indication: PRODUCT USED FOR UNKNOWN INDICATION
  9. CROMOLYN SODIUM [Concomitant]
     Indication: PRODUCT USED FOR UNKNOWN INDICATION
  10. NASONEX [Concomitant]
     Indication: PRODUCT USED FOR UNKNOWN INDICATION
  11. DUONEB [Concomitant]
     Indication: PRODUCT USED FOR UNKNOWN INDICATION
  12. XOLAIR [Suspect]
     Indication: ASTHMA
     Dosage: 150 /ML, 1/MONTH
     Route: 058
     Dates: start: 20110106
  13. FLONASE [Concomitant]
     Indication: PRODUCT USED FOR UNKNOWN INDICATION
  14. ZYFLO [Concomitant]
     Indication: PRODUCT USED FOR UNKNOWN INDICATION

REACTIONS (9)
  - WHEEZING [None]
  - TREMOR [None]
  - PYREXIA [None]
  - PRODUCTIVE COUGH [None]
  - SWOLLEN TONGUE [None]
  - DYSPNOEA [None]
  - LUNG DISORDER [None]
  - MALAISE [None]
  - CHEST DISCOMFORT [None]
